FAERS Safety Report 5634019-X (Version None)
Quarter: 2008Q1

REPORT INFORMATION
  Report Type: 
  Country: None (occurrence: None)
  Receive Date: 20080219
  Receipt Date: 20080130
  Transmission Date: 20080703
  Serious: Yes (Other)
  Sender: FDA-Public Use
  Company Number: JPKYO-S-20060020

PATIENT
  Age: 49 Year
  Sex: Male

DRUGS (1)
  1. NAVELBINE [Suspect]
     Indication: NON-SMALL CELL LUNG CANCER
     Dosage: 20 MG/M2 IV
     Route: 042
     Dates: start: 20060308, end: 20060308

REACTIONS (1)
  - ANAPHYLACTIC SHOCK [None]
